FAERS Safety Report 4794822-5 (Version None)
Quarter: 2005Q3

REPORT INFORMATION
  Report Type: 
  Country: None (occurrence: None)
  Receive Date: 20050914
  Receipt Date: 20041007
  Transmission Date: 20060218
  Serious: Yes (Hospitalization)
  Sender: FDA-Public Use
  Company Number: 163-20785-04100230

PATIENT
  Age: 67 Year
  Sex: Male

DRUGS (2)
  1. THALOMID [Suspect]
     Indication: MULTIPLE MYELOMA
     Dosage: 200 MG, DAILY, ORAL
     Route: 048
     Dates: start: 20030101
  2. STEROIDS (CORTICOSTEROIDS) (UNKNOWN) [Concomitant]

REACTIONS (3)
  - AMNESIA [None]
  - CELLULITIS [None]
  - FUNGAL INFECTION [None]
